FAERS Safety Report 11804428 (Version 1)
Quarter: 2015Q4

REPORT INFORMATION
  Report Type: Spontaneous
  Country: US (occurrence: US)
  Receive Date: 20151204
  Receipt Date: 20151204
  Transmission Date: 20160305
  Serious: No
  Sender: FDA-Public Use
  Company Number: US-BAUSCH-BL-2014-010658

PATIENT
  Age: 11 Year
  Sex: Male

DRUGS (1)
  1. XENAZINE [Suspect]
     Active Substance: TETRABENAZINE
     Indication: SYDENHAM^S CHOREA
     Dosage: ? TAB TWICE DAILY FOR WEEK 1-2, THEN 1 TAB BID FOR WEEK 3-4
     Route: 048
     Dates: start: 20141121

REACTIONS (3)
  - Drug administration error [Unknown]
  - Urinary incontinence [Unknown]
  - Off label use [Not Recovered/Not Resolved]

NARRATIVE: CASE EVENT DATE: 2014
